FAERS Safety Report 9211429 (Version 1)
Quarter: 2013Q2

REPORT INFORMATION
  Report Type: Spontaneous
  Country: US (occurrence: US)
  Receive Date: 20130404
  Receipt Date: 20130404
  Transmission Date: 20140414
  Serious: Yes (Hospitalization)
  Sender: FDA-Public Use
  Company Number: US-AMGEN-USASP2013014885

PATIENT
  Age: 61 Year
  Sex: Male

DRUGS (2)
  1. ENBREL [Suspect]
     Indication: RHEUMATOID ARTHRITIS
     Dosage: 50 MG, QWK
     Dates: start: 20120101, end: 201212
  2. METHOTREXATE [Concomitant]
     Dosage: 22.5 MG, UNK
     Dates: start: 201201

REACTIONS (2)
  - Pneumonia [Recovered/Resolved]
  - Cough [Not Recovered/Not Resolved]
